FAERS Safety Report 17246622 (Version 1)
Quarter: 2020Q1

REPORT INFORMATION
  Report Type: Spontaneous
  Country: IT (occurrence: IT)
  Receive Date: 20200108
  Receipt Date: 20200108
  Transmission Date: 20200409
  Serious: Yes (Other)
  Sender: FDA-Public Use
  Company Number: IT-ELI_LILLY_AND_COMPANY-IT202001000244

PATIENT
  Age: 47 Year
  Sex: Male

DRUGS (3)
  1. ERBITUX [Suspect]
     Active Substance: CETUXIMAB
     Indication: SALIVARY GLAND NEOPLASM
     Dosage: 400 MG, CYCLICAL
     Route: 042
     Dates: start: 20191205
  2. FLUOROURACILE TEVA [Suspect]
     Active Substance: FLUOROURACIL
     Indication: SALIVARY GLAND NEOPLASM
     Dosage: 6800 MG, UNKNOWN
     Route: 042
     Dates: start: 20191205
  3. CISPLATINO ACCORD [Suspect]
     Active Substance: CISPLATIN
     Indication: SALIVARY GLAND NEOPLASM
     Dosage: 130 MG, UNKNOWN
     Route: 042
     Dates: start: 20191205

REACTIONS (2)
  - Vomiting [Recovering/Resolving]
  - Neutropenia [Recovering/Resolving]

NARRATIVE: CASE EVENT DATE: 20191219
